FAERS Safety Report 5542551-2 (Version None)
Quarter: 2007Q4

REPORT INFORMATION
  Report Type: 
  Country: None (occurrence: None)
  Receive Date: 20071210
  Receipt Date: 20071129
  Transmission Date: 20080405
  Serious: Yes (Other)
  Sender: FDA-Public Use
  Company Number: TW-SANOFI-SYNTHELABO-A01200713585

PATIENT

DRUGS (2)
  1. CHLOROQUINE PHOSPHATE [Suspect]
     Indication: MALARIA
     Dosage: UNK
     Route: 065
  2. MEFLOQUINE [Suspect]
     Dosage: UNK
     Route: 065

REACTIONS (1)
  - HYPOTENSION [None]
